FAERS Safety Report 7104907-6 (Version None)
Quarter: 2010Q4

REPORT INFORMATION
  Report Type: 
  Country: None (occurrence: None)
  Receive Date: 20101110
  Receipt Date: 20101026
  Transmission Date: 20110411
  Serious: Yes (Hospitalization)
  Sender: FDA-Public Use
  Company Number: UTC-001819

PATIENT
  Age: 55 Year
  Sex: Female

DRUGS (3)
  1. REMODULIN [Suspect]
     Indication: PULMONARY ARTERIAL HYPERTENSION
     Dosage: INTRAVENOUS
     Route: 042
  2. ADCIRCA (TADALAFIL) [Concomitant]
  3. COUMADIN [Concomitant]

REACTIONS (4)
  - BLOOD PRESSURE DECREASED [None]
  - DEHYDRATION [None]
  - DIARRHOEA [None]
  - RENAL FAILURE [None]
